FAERS Safety Report 4430147-5 (Version None)
Quarter: 2004Q3

REPORT INFORMATION
  Report Type: 
  Country: None (occurrence: None)
  Receive Date: 20040820
  Receipt Date: 20040802
  Transmission Date: 20050211
  Serious: No
  Sender: FDA-Public Use
  Company Number: PHRM2004FR02508

PATIENT
  Age: 56 Year
  Sex: Female
  Weight: 70 kg

DRUGS (4)
  1. FEMARA [Suspect]
     Indication: BREAST CANCER
     Dosage: 2.5 MG, QD
     Route: 048
     Dates: start: 19990901, end: 20040521
  2. PROZAC [Suspect]
     Indication: DEPRESSION
     Dosage: 30 MG DAILY
     Route: 048
     Dates: start: 20000101
  3. LEXOMIL [Concomitant]
  4. STILNOX [Concomitant]
     Dosage: 1.5 DF PER DAY
     Route: 048

REACTIONS (2)
  - FATIGUE [None]
  - HYPOMANIA [None]
